FAERS Safety Report 23493014 (Version 1)
Quarter: 2024Q1

REPORT INFORMATION
  Report Type: Report from Study
  Country: NL (occurrence: NL)
  Receive Date: 20240207
  Receipt Date: 20240207
  Transmission Date: 20240410
  Serious: Yes (Death)
  Sender: FDA-Public Use
  Company Number: NL-ABBVIE-5627545

PATIENT
  Age: 76 Year
  Sex: Female

DRUGS (8)
  1. CARBIDOPA\LEVODOPA [Suspect]
     Active Substance: CARBIDOPA\LEVODOPA
     Indication: Parkinson^s disease
     Dosage: MD 8.0, CD 3.0, ED 1.00, END 1.00, CND 1.5
     Route: 050
     Dates: start: 20230606, end: 20230824
  2. CARBIDOPA\LEVODOPA [Suspect]
     Active Substance: CARBIDOPA\LEVODOPA
     Dosage: MD 8.0, CD 3.1, ED 1.00
     Route: 050
     Dates: start: 20230824, end: 20230828
  3. CARBIDOPA\LEVODOPA [Suspect]
     Active Substance: CARBIDOPA\LEVODOPA
     Dosage: MD 8.0, CD 3.0, ED 1.00
     Route: 050
     Dates: start: 20230828, end: 20231016
  4. CARBIDOPA\LEVODOPA [Suspect]
     Active Substance: CARBIDOPA\LEVODOPA
     Dosage: MD 7.0, CD 3.0, ED 1.00, END 1.00, CND 1.5
     Route: 050
     Dates: start: 20231116
  5. CARBIDOPA\LEVODOPA [Suspect]
     Active Substance: CARBIDOPA\LEVODOPA
     Dates: start: 20220509
  6. CARBIDOPA\LEVODOPA [Suspect]
     Active Substance: CARBIDOPA\LEVODOPA
     Dosage: MD 7.0, CD 3.0, ED 1.00, END 1.00, CND 1.5
     Route: 050
     Dates: start: 20231016, end: 20231116
  7. PREDNISONE [Concomitant]
     Active Substance: PREDNISONE
     Indication: Product used for unknown indication
     Dosage: 20 MILLIGRAM
  8. POLYETHYLENE GLYCOLS [Concomitant]
     Active Substance: POLYETHYLENE GLYCOLS
     Indication: Constipation
     Dosage: 1 SACHET

REACTIONS (3)
  - Crohn^s disease [Fatal]
  - Parkinson^s disease [Fatal]
  - Discomfort [Fatal]
